FAERS Safety Report 19096505 (Version 1)
Quarter: 2021Q2

REPORT INFORMATION
  Report Type: Spontaneous
  Country: US (occurrence: US)
  Receive Date: 20210406
  Receipt Date: 20210406
  Transmission Date: 20210717
  Serious: Yes (Other)
  Sender: FDA-Public Use
  Company Number: US-STRIDES ARCOLAB LIMITED-2021SP003945

PATIENT
  Age: 31 Year
  Sex: Female

DRUGS (10)
  1. TRIAMCINOLONE [Suspect]
     Active Substance: TRIAMCINOLONE
     Indication: CROHN^S DISEASE
     Dosage: UNK
     Route: 026
  2. METRONIDAZOLE. [Suspect]
     Active Substance: METRONIDAZOLE
     Indication: CROHN^S DISEASE
     Dosage: UNK
     Route: 061
  3. CERTOLIZUMAB PEGOL [Suspect]
     Active Substance: CERTOLIZUMAB PEGOL
     Indication: CROHN^S DISEASE
     Dosage: UNK
     Route: 065
  4. INFLIXIMAB [Suspect]
     Active Substance: INFLIXIMAB
     Indication: CROHN^S DISEASE
     Dosage: UNK
     Route: 065
  5. PREDNISOLONE. [Suspect]
     Active Substance: PREDNISOLONE
     Indication: CROHN^S DISEASE
     Dosage: UNK
     Route: 048
  6. CLOBETASOL [Suspect]
     Active Substance: CLOBETASOL
     Indication: CROHN^S DISEASE
     Dosage: UNK
     Route: 065
  7. ADALIMUMAB [Suspect]
     Active Substance: ADALIMUMAB
     Indication: CROHN^S DISEASE
     Dosage: UNK
     Route: 065
  8. PIMECROLIMUS. [Suspect]
     Active Substance: PIMECROLIMUS
     Indication: CROHN^S DISEASE
     Dosage: UNK
     Route: 061
  9. MERCAPTOPURINE. [Suspect]
     Active Substance: MERCAPTOPURINE
     Indication: CROHN^S DISEASE
     Dosage: UNK
     Route: 065
  10. METRONIDAZOLE. [Suspect]
     Active Substance: METRONIDAZOLE
     Indication: METASTATIC CUTANEOUS CROHN^S DISEASE
     Dosage: UNK
     Route: 048

REACTIONS (4)
  - Metastatic cutaneous Crohn^s disease [Recovered/Resolved]
  - Beta haemolytic streptococcal infection [Unknown]
  - Staphylococcal infection [Unknown]
  - Drug ineffective [Unknown]
